FAERS Safety Report 9306441 (Version 1)
Quarter: 2013Q2

REPORT INFORMATION
  Report Type: Spontaneous
  Country: US (occurrence: US)
  Receive Date: 20130523
  Receipt Date: 20130523
  Transmission Date: 20140414
  Serious: Yes (Disabling)
  Sender: FDA-Public Use
  Company Number: US-ASTRAZENECA-2010SE07181

PATIENT
  Age: 62 Year
  Sex: Male
  Weight: 138.3 kg

DRUGS (17)
  1. TOPROL XL [Suspect]
     Indication: HYPERTENSION
     Route: 048
  2. TOPROL XL [Suspect]
     Indication: HYPERTENSION
     Route: 048
     Dates: start: 2006, end: 20100106
  3. TOPROL XL [Suspect]
     Indication: HYPERTENSION
     Route: 048
     Dates: start: 20100106
  4. TOPROL XL [Suspect]
     Indication: HYPERTENSION
     Route: 048
     Dates: start: 20130514
  5. COLCHICINE [Suspect]
     Indication: GOUT
     Route: 048
  6. MOBIC [Concomitant]
  7. ALLOPURINAL [Concomitant]
     Indication: BLOOD URIC ACID
  8. LEVOXYL/ SYNTHROID [Concomitant]
     Indication: THYROID DISORDER
     Dates: end: 20130418
  9. LEVOXYL/ SYNTHROID [Concomitant]
     Indication: THYROID DISORDER
     Dates: start: 20130419
  10. PREDNISONE [Concomitant]
  11. LORAZEPAM [Concomitant]
     Indication: ANXIETY
  12. PREVACID [Concomitant]
     Indication: ARTHRITIS
  13. PREVACID [Concomitant]
     Indication: GOUT
  14. PERCOCET [Concomitant]
  15. DIOVAN [Concomitant]
     Indication: HYPERTENSION
  16. OXYCODONE/ APAP [Concomitant]
     Indication: PAIN
     Dosage: 10/ 325 MG, EVERY 4 HOURS
  17. MELOXICON [Concomitant]
     Indication: GOUT

REACTIONS (15)
  - Gouty arthritis [Not Recovered/Not Resolved]
  - Blood pressure increased [Not Recovered/Not Resolved]
  - Pain in extremity [Not Recovered/Not Resolved]
  - Gout [Not Recovered/Not Resolved]
  - Gastric disorder [Not Recovered/Not Resolved]
  - Neuropathy peripheral [Not Recovered/Not Resolved]
  - Blood pressure fluctuation [Recovered/Resolved]
  - Blood glucose increased [Recovered/Resolved]
  - Blood glucose decreased [Recovered/Resolved]
  - Blood glucose fluctuation [Recovered/Resolved]
  - Pain [Not Recovered/Not Resolved]
  - Weight increased [Not Recovered/Not Resolved]
  - Dizziness [Recovered/Resolved]
  - Anxiety [Not Recovered/Not Resolved]
  - Drug ineffective [Unknown]
